FAERS Safety Report 9030213 (Version 2)
Quarter: 2013Q1

REPORT INFORMATION
  Report Type: Report from Study
  Country: KR (occurrence: KR)
  Receive Date: 20130125
  Receipt Date: 20130208
  Transmission Date: 20140127
  Serious: Yes (Hospitalization)
  Sender: FDA-Public Use
  Company Number: KR-009507513-1301KOR010522

PATIENT
  Age: 61 Year
  Sex: Female
  Weight: 60 kg

DRUGS (11)
  1. DEXAMETHASONE [Suspect]
     Indication: PLASMA CELL MYELOMA
     Dosage: UNK
     Dates: start: 20121204, end: 20130104
  2. BORTEZOMIB [Suspect]
     Indication: PLASMA CELL MYELOMA
     Dosage: 1.3 MG/M2, UNK
     Route: 058
     Dates: start: 20121204, end: 20130103
  3. ACETAMINOPHEN (+) TRAMADOL HYDROCHLORIDE [Concomitant]
     Indication: BONE PAIN
     Dosage: UNK
     Dates: start: 20121116, end: 20130110
  4. CIPROFLOXACIN [Concomitant]
     Indication: INFECTION PROPHYLAXIS
     Dosage: UNK
     Dates: start: 20121204
  5. FLUCONAZOLE [Concomitant]
     Indication: INFECTION PROPHYLAXIS
     Dosage: UNK
     Dates: start: 20121204
  6. INSULIN, PROTAMINE ZINC [Concomitant]
     Indication: DIABETES MELLITUS
     Dosage: SUSPENSION
     Dates: start: 20121205, end: 20130104
  7. MAGNESIUM OXIDE [Concomitant]
     Indication: CONSTIPATION
     Dosage: UNK
     Dates: start: 20121214
  8. MEGESTROL ACETATE [Concomitant]
     Indication: DECREASED APPETITE
     Dosage: UNK
     Dates: start: 20121224, end: 20130111
  9. ORNITHINE [Concomitant]
     Indication: DECREASED APPETITE
     Dosage: UNK
     Dates: start: 20121231, end: 20130103
  10. GABAPENTIN [Concomitant]
     Indication: NEUROPATHY PERIPHERAL
     Dosage: UNK
     Dates: start: 20130103, end: 20130110
  11. PROCTOSEDYL (BENZOCAINE (+) BUTAMBEN (+) ESCULIN (+) FRAMYCETIN SULFAT [Concomitant]
     Dosage: UNK
     Dates: start: 20130103, end: 20130103

REACTIONS (2)
  - Decreased appetite [Recovered/Resolved]
  - Neuropathy peripheral [Recovering/Resolving]
